FAERS Safety Report 5417979-1 (Version None)
Quarter: 2007Q3

REPORT INFORMATION
  Report Type: 
  Country: None (occurrence: None)
  Receive Date: 20070817
  Receipt Date: 20070813
  Transmission Date: 20080115
  Serious: Yes (Other)
  Sender: FDA-Public Use
  Company Number: GB-AVENTIS-200717421GDDC

PATIENT
  Age: 66 Year
  Sex: Female

DRUGS (3)
  1. TAXOTERE [Suspect]
     Dosage: DOSE: 86 (420 MG AS CUMULATIVE DOSE)
     Route: 042
     Dates: start: 20000307, end: 20000516
  2. EPIRUBICIN [Suspect]
     Dosage: DOSE: 125 (514 MG AS CUMULATIVE DOSE)
     Route: 042
     Dates: start: 20000606, end: 20000718
  3. TAMOXIFEN CITRATE [Suspect]
     Route: 048
     Dates: start: 20000314, end: 20050119

REACTIONS (1)
  - NON-HODGKIN'S LYMPHOMA [None]
